FAERS Safety Report 7367124-0 (Version None)
Quarter: 2011Q1

REPORT INFORMATION
  Report Type: 
  Country: None (occurrence: None)
  Receive Date: 20110322
  Receipt Date: 20110318
  Transmission Date: 20110831
  Serious: Yes (Hospitalization)
  Sender: FDA-Public Use
  Company Number: FR-SHIRE-SPV1-2011-00441

PATIENT

DRUGS (2)
  1. ARANESP [Concomitant]
     Dosage: 300 ?G, EVERY 12-13 DAYS
     Dates: start: 20070601
  2. XAGRID [Suspect]
     Indication: ESSENTIAL THROMBOCYTHAEMIA
     Dosage: 2 MG, 1X/DAY:QD
     Dates: start: 20050606

REACTIONS (2)
  - METASTASES TO PLEURA [None]
  - BRONCHIOLOALVEOLAR CARCINOMA [None]
